FAERS Safety Report 20438400 (Version 3)
Quarter: 2022Q1

REPORT INFORMATION
  Report Type: Spontaneous
  Country: US (occurrence: US)
  Receive Date: 20220207
  Receipt Date: 20220317
  Transmission Date: 20220424
  Serious: No
  Sender: FDA-Public Use
  Company Number: US-PFIZER INC-202200142171

PATIENT
  Age: 46 Year
  Sex: Female
  Weight: 72.2 kg

DRUGS (1)
  1. DEPO-PROVERA [Suspect]
     Active Substance: MEDROXYPROGESTERONE ACETATE
     Indication: Contraception
     Dosage: 150 MG

REACTIONS (3)
  - Paraesthesia [Unknown]
  - Pain [Unknown]
  - Product administration error [Unknown]

NARRATIVE: CASE EVENT DATE: 20220125
